FAERS Safety Report 4408324-9 (Version None)
Quarter: 2004Q3

REPORT INFORMATION
  Report Type: 
  Country: None (occurrence: None)
  Receive Date: 20040722
  Receipt Date: 20040707
  Transmission Date: 20050211
  Serious: No
  Sender: FDA-Public Use
  Company Number: A0517324A

PATIENT
  Age: 67 Year
  Sex: Male
  Weight: 102.1047 kg

DRUGS (4)
  1. NICODERM CQ [Suspect]
     Indication: EX-SMOKER
     Dosage: 21MG, TRANSDERMAL
     Route: 062
     Dates: start: 20040428
  2. QUINAPRIL HYDROCHLORIDE [Concomitant]
  3. AMLODIPINE [Concomitant]
  4. TERAZOSIN HYDROCHLORIDE [Concomitant]

REACTIONS (3)
  - RETINAL DETACHMENT [None]
  - VISION BLURRED [None]
  - VISUAL FIELD DEFECT [None]
